FAERS Safety Report 7147777-2 (Version None)
Quarter: 2010Q4

REPORT INFORMATION
  Report Type: 
  Country: None (occurrence: None)
  Receive Date: 20101209
  Receipt Date: 20101130
  Transmission Date: 20110411
  Serious: No
  Sender: FDA-Public Use
  Company Number: US-BIOGENIDEC-2010BI042541

PATIENT
  Sex: Male

DRUGS (2)
  1. AVONEX [Suspect]
     Indication: MULTIPLE SCLEROSIS
     Route: 030
     Dates: start: 20080101
  2. AVONEX [Suspect]
     Route: 030
     Dates: end: 20030101

REACTIONS (5)
  - DEPRESSION [None]
  - DIZZINESS [None]
  - HYPOPHAGIA [None]
  - INSOMNIA [None]
  - PAIN IN EXTREMITY [None]
